FAERS Safety Report 9462593 (Version 1)
Quarter: 2013Q3

REPORT INFORMATION
  Report Type: Other
  Country: ZA (occurrence: ZA)
  Receive Date: 20130816
  Receipt Date: 20130816
  Transmission Date: 20140515
  Serious: Yes (Other)
  Sender: FDA-Public Use
  Company Number: ZA-BRISTOL-MYERS SQUIBB COMPANY-19180645

PATIENT
  Age: 34 Year
  Sex: Female

DRUGS (4)
  1. EFAVIRENZ CAPS [Suspect]
     Indication: HIV INFECTION
     Route: 048
  2. STAVUDINE [Suspect]
     Indication: HIV INFECTION
  3. LAMIVUDINE [Suspect]
     Indication: HIV INFECTION
  4. NEVIRAPINE [Suspect]
     Indication: HIV INFECTION

REACTIONS (2)
  - Abortion induced [Unknown]
  - Pregnancy [Unknown]
